FAERS Safety Report 16125308 (Version 1)
Quarter: 2019Q1

REPORT INFORMATION
  Report Type: Other
  Country: US (occurrence: US)
  Receive Date: 20190327
  Receipt Date: 20190327
  Transmission Date: 20190418
  Serious: Yes (Death)
  Sender: FDA-Public Use
  Company Number: US-VERASTEM-2019-00030

PATIENT

DRUGS (1)
  1. COPIKTRA [Suspect]
     Active Substance: DUVELISIB
     Indication: ADULT T-CELL LYMPHOMA/LEUKAEMIA
     Dosage: 25 MG, BID
     Route: 048
     Dates: start: 20190114, end: 20190227

REACTIONS (2)
  - Product use in unapproved indication [Recovered/Resolved]
  - Disease progression [Fatal]

NARRATIVE: CASE EVENT DATE: 20190114
